FAERS Safety Report 5274435-1 (Version None)
Quarter: 2007Q1

REPORT INFORMATION
  Report Type: 
  Country: None (occurrence: None)
  Receive Date: 20070323
  Receipt Date: 20070313
  Transmission Date: 20070707
  Serious: Yes (Life-Threatening)
  Sender: FDA-Public Use
  Company Number: JP-PFIZER INC-2007019578

PATIENT
  Age: 74 Year
  Sex: Male
  Weight: 55 kg

DRUGS (3)
  1. VFEND [Suspect]
     Indication: PNEUMONIA FUNGAL
     Dosage: DAILY DOSE:400MG
     Route: 048
     Dates: start: 20070309, end: 20070310
  2. CYCLOSPORINE [Concomitant]
  3. TAKEPRON [Concomitant]

REACTIONS (3)
  - BLOOD PRESSURE DECREASED [None]
  - RENAL FAILURE ACUTE [None]
  - RESPIRATORY FAILURE [None]
